FAERS Safety Report 17294555 (Version 2)
Quarter: 2020Q1

REPORT INFORMATION
  Report Type: Report from Study
  Country: None (occurrence: US)
  Receive Date: 20200121
  Receipt Date: 20200128
  Transmission Date: 20200409
  Serious: Yes (Other)
  Sender: FDA-Public Use
  Company Number: US-ABBVIE-20K-163-3235576-00

PATIENT
  Age: 63 Year
  Sex: Female
  Weight: 53.57 kg

DRUGS (2)
  1. CREON [Suspect]
     Active Substance: PANCRELIPASE AMYLASE\PANCRELIPASE LIPASE\PANCRELIPASE PROTEASE
     Route: 048
     Dates: start: 2019
  2. CREON [Suspect]
     Active Substance: PANCRELIPASE AMYLASE\PANCRELIPASE LIPASE\PANCRELIPASE PROTEASE
     Indication: PANCREATECTOMY
     Route: 048
     Dates: start: 2009, end: 2009

REACTIONS (11)
  - Knee arthroplasty [Unknown]
  - Ligament operation [Unknown]
  - Procedural complication [Unknown]
  - Fall [Recovered/Resolved]
  - Wrist fracture [Recovered/Resolved]
  - Glucose tolerance impaired [Recovering/Resolving]
  - Pancreaticoduodenectomy [Unknown]
  - Cartilage injury [Recovered/Resolved]
  - Wrist fracture [Recovered/Resolved]
  - Hand fracture [Recovered/Resolved]
  - Ligament injury [Recovered/Resolved]

NARRATIVE: CASE EVENT DATE: 2009
